FAERS Safety Report 9413702 (Version 1)
Quarter: 2013Q3

REPORT INFORMATION
  Report Type: Spontaneous
  Country: FR (occurrence: FR)
  Receive Date: 20130722
  Receipt Date: 20130722
  Transmission Date: 20140515
  Serious: Yes (Death)
  Sender: FDA-Public Use
  Company Number: FR-BAXTER-2013BAX027594

PATIENT
  Age: 39 Year
  Sex: Female
  Weight: 61 kg

DRUGS (9)
  1. HOLOXAN 2000 MG, POUDRE POUR USAGE PARENT?RAL [Suspect]
     Indication: SARCOMA UTERUS
     Dosage: 5G/M2
     Route: 042
     Dates: start: 20130205
  2. HOLOXAN 2000 MG, POUDRE POUR USAGE PARENT?RAL [Suspect]
     Dosage: 5G/M2
     Route: 042
     Dates: start: 20130228
  3. EMEND [Suspect]
     Indication: NAUSEA
     Route: 065
     Dates: start: 20130205
  4. EMEND [Suspect]
     Route: 065
     Dates: start: 201302
  5. ZOPHREN [Concomitant]
     Indication: PRODUCT USED FOR UNKNOWN INDICATION
     Route: 065
  6. MESNA [Concomitant]
     Indication: PRODUCT USED FOR UNKNOWN INDICATION
     Route: 065
  7. METHYLPREDNISOLONE [Concomitant]
     Indication: PRODUCT USED FOR UNKNOWN INDICATION
     Route: 065
  8. DOXORUBICIN [Concomitant]
     Indication: SARCOMA
     Route: 065
     Dates: start: 2012
  9. IFOSFAMIDE [Concomitant]
     Indication: SARCOMA
     Route: 065
     Dates: start: 2012

REACTIONS (2)
  - Encephalopathy [Recovering/Resolving]
  - Febrile bone marrow aplasia [Fatal]
